FAERS Safety Report 19279099 (Version 1)
Quarter: 2021Q2

REPORT INFORMATION
  Report Type: Spontaneous
  Country: US (occurrence: US)
  Receive Date: 20210520
  Receipt Date: 20210520
  Transmission Date: 20210717
  Serious: Yes (Death)
  Sender: FDA-Public Use
  Company Number: None

PATIENT
  Age: 81 Year
  Sex: Female

DRUGS (22)
  1. BOTIN [Concomitant]
     Dates: start: 20190103, end: 20210311
  2. LEVOTHYROXINE SODIUM. [Concomitant]
     Active Substance: LEVOTHYROXINE SODIUM
  3. AREDS 2 [Concomitant]
     Active Substance: MINERALS\VITAMINS
  4. CENTRUM SILVER [Concomitant]
     Active Substance: MINERALS\VITAMINS
     Dates: start: 20190103, end: 20210511
  5. CHLORPHENRAMIN MALESATE [Concomitant]
  6. CURSUM?EVAIL CHEWABLES [Concomitant]
  7. DOXYCYCLINE HYLCALE [Concomitant]
  8. FUROSEMIDE. [Concomitant]
     Active Substance: FUROSEMIDE
  9. MAG?OXIDE [Concomitant]
     Active Substance: MAGNESIUM OXIDE
  10. PRIVIGEN [Suspect]
     Active Substance: HUMAN IMMUNOGLOBULIN G
     Indication: IMMUNODEFICIENCY COMMON VARIABLE
     Dosage: ?          OTHER FREQUENCY:EVERY4WEEKS ;?
     Route: 042
     Dates: start: 20190104, end: 20210426
  11. HYOSCYAMINE SULFATE. [Concomitant]
     Active Substance: HYOSCYAMINE SULFATE
  12. LYRICA [Concomitant]
     Active Substance: PREGABALIN
  13. TRAMADOL HCL [Concomitant]
     Active Substance: TRAMADOL HYDROCHLORIDE
  14. DOCUSATE SODIUM. [Concomitant]
     Active Substance: DOCUSATE SODIUM
  15. DORZOLAMIDE HCL?TIMOLOL MALEATE [Concomitant]
     Active Substance: DORZOLAMIDE HYDROCHLORIDE\TIMOLOL MALEATE
  16. HYDROCORTIZONE [Concomitant]
     Active Substance: HYDROCORTISONE
  17. VITAMIN C [Concomitant]
     Active Substance: ASCORBIC ACID
  18. METOPROLOL TARTRATE. [Concomitant]
     Active Substance: METOPROLOL TARTRATE
  19. TRIMETHOPRIM. [Concomitant]
     Active Substance: TRIMETHOPRIM
  20. AZELASTINE HCL [Concomitant]
     Active Substance: AZELASTINE HYDROCHLORIDE
  21. MIRALAX [Concomitant]
     Active Substance: POLYETHYLENE GLYCOL 3350
  22. PANTOPRAZOLE SODIUM. [Concomitant]
     Active Substance: PANTOPRAZOLE SODIUM

REACTIONS (1)
  - Paraplegia [None]

NARRATIVE: CASE EVENT DATE: 20210504
